FAERS Safety Report 5298136-9 (Version None)
Quarter: 2007Q2

REPORT INFORMATION
  Report Type: 
  Country: None (occurrence: None)
  Receive Date: 20070416
  Receipt Date: 20070411
  Transmission Date: 20071010
  Serious: Yes (Disabling)
  Sender: FDA-Public Use
  Company Number: BE-BRISTOL-MYERS SQUIBB COMPANY-13679543

PATIENT
  Sex: Male

DRUGS (1)
  1. KENACORT-A INJ 40 MG/ML [Suspect]
     Indication: UVEITIS
     Route: 031
     Dates: start: 20060622, end: 20060622

REACTIONS (3)
  - BLINDNESS UNILATERAL [None]
  - EYE EXCISION [None]
  - RETINAL VEIN THROMBOSIS [None]
